FAERS Safety Report 13739300 (Version 1)
Quarter: 2017Q3

REPORT INFORMATION
  Report Type: Spontaneous
  Country: US (occurrence: US)
  Receive Date: 20170710
  Receipt Date: 20170710
  Transmission Date: 20171127
  Serious: No
  Sender: FDA-Public Use
  Company Number: US-MISSION PHARMACAL COMPANY-2023166

PATIENT
  Age: 56 Year
  Sex: Female

DRUGS (11)
  1. VITAMIN B6 - 50MG [Concomitant]
     Route: 065
  2. CLEARASIL [Concomitant]
     Route: 065
  3. CLINDAMYCIN. [Concomitant]
     Active Substance: CLINDAMYCIN
     Route: 065
  4. BUMEX [Concomitant]
     Active Substance: BUMETANIDE
     Route: 065
  5. VITAMIN D [Concomitant]
     Active Substance: CHOLECALCIFEROL
     Route: 065
  6. GASX [Concomitant]
     Route: 065
  7. VITAMIN E 400IU [Concomitant]
     Route: 065
  8. CAPTOPRIL. [Concomitant]
     Active Substance: CAPTOPRIL
     Route: 065
  9. METOPROLOL. [Concomitant]
     Active Substance: METOPROLOL
     Route: 065
  10. THIOLA [Suspect]
     Active Substance: TIOPRONIN
     Indication: CYSTINURIA
     Route: 065
     Dates: start: 20140911
  11. MAGNESIUM [Concomitant]
     Active Substance: MAGNESIUM
     Route: 065

REACTIONS (8)
  - Rash [Unknown]
  - Pain [Unknown]
  - Neuralgia [Unknown]
  - Joint swelling [Unknown]
  - Peripheral swelling [Unknown]
  - Muscle spasms [Unknown]
  - Myalgia [Not Recovered/Not Resolved]
  - Abdominal distension [Unknown]

NARRATIVE: CASE EVENT DATE: 20140911
